FAERS Safety Report 10748413 (Version 1)
Quarter: 2015Q1

REPORT INFORMATION
  Report Type: Spontaneous
  Country: US (occurrence: None)
  Receive Date: 20150120
  Receipt Date: 20150120
  Transmission Date: 20150721
  Serious: Yes (Other)
  Sender: FDA-Public Use
  Company Number: AEGR000842

PATIENT
  Age: 52 Year
  Sex: Female
  Weight: 71.7 kg

DRUGS (2)
  1. JUXTAPID [Suspect]
     Active Substance: LOMITAPIDE MESYLATE
     Indication: LOW DENSITY LIPOPROTEIN INCREASED
     Route: 048
     Dates: start: 20141004, end: 201410
  2. NITROGLYCERINE (GLYCERYL TRINITRATE) [Concomitant]

REACTIONS (4)
  - Off label use [None]
  - Blood pressure fluctuation [None]
  - Condition aggravated [None]
  - Angina pectoris [None]

NARRATIVE: CASE EVENT DATE: 2014
